FAERS Safety Report 5901623-0 (Version None)
Quarter: 2008Q3

REPORT INFORMATION
  Report Type: 
  Country: None (occurrence: None)
  Receive Date: 20080926
  Receipt Date: 20080926
  Transmission Date: 20090109
  Serious: Yes (Hospitalization)
  Sender: FDA-Public Use
  Company Number: None

PATIENT
  Age: 39 Year
  Sex: Male
  Weight: 84.6 kg

DRUGS (1)
  1. LEXAPRO [Suspect]
     Indication: PREMATURE EJACULATION
     Dosage: 1 TAB QD PO
     Route: 048

REACTIONS (4)
  - BLISTER [None]
  - BURNING SENSATION [None]
  - PRURITUS [None]
  - SKIN LESION [None]
